FAERS Safety Report 24642484 (Version 2)
Quarter: 2024Q4

REPORT INFORMATION
  Report Type: Spontaneous
  Country: JP (occurrence: JP)
  Receive Date: 20241120
  Receipt Date: 20241126
  Transmission Date: 20250114
  Serious: Yes (Hospitalization, Other)
  Sender: BRISTOL-MYERS SQUIBB COMPANY
  Company Number: JP-BRISTOL-MYERS SQUIBB COMPANY-2024-158005

PATIENT
  Age: 93 Year
  Sex: Female
  Weight: 34.4 kg

DRUGS (7)
  1. ELIQUIS [Suspect]
     Active Substance: APIXABAN
     Indication: Thrombosis prophylaxis
     Dates: end: 20240813
  2. ELIQUIS [Suspect]
     Active Substance: APIXABAN
     Indication: Cerebrovascular accident
     Dosage: DOSE REDUCED
     Route: 048
     Dates: end: 20240903
  3. POLAPREZINC [Concomitant]
     Active Substance: POLAPREZINC
     Indication: Gastritis
     Dosage: NS
     Dates: start: 20240724
  4. BISOPROLOL FUMARATE [Concomitant]
     Active Substance: BISOPROLOL FUMARATE
     Indication: Hypertension
     Dosage: TAKEN SINCE BEFORE HOSPITALIZATION
     Route: 048
     Dates: end: 20240830
  5. TAURINE [Concomitant]
     Active Substance: TAURINE
     Indication: Cardiac failure
     Dosage: TAKEN SINCE BEFORE HOSPITALIZATION
     Route: 048
     Dates: start: 20240727
  6. TORSEMIDE [Concomitant]
     Active Substance: TORSEMIDE
     Indication: Oedema due to cardiac disease
     Dosage: TAKEN SINCE BEFORE HOSPITALIZATION
     Route: 048
     Dates: start: 20240803
  7. SODIUM BICARBONATE\SODIUM PHOSPHATE, MONOBASIC [Concomitant]
     Active Substance: SODIUM BICARBONATE\SODIUM PHOSPHATE, MONOBASIC
     Indication: Constipation
     Dosage: 1 SUPPOSITORY AS NEEDED
     Dates: start: 20240905

REACTIONS (5)
  - Dehydration [Unknown]
  - Pyrexia [Recovered/Resolved]
  - Melaena [Unknown]
  - Purpura [Unknown]
  - Off label use [Unknown]

NARRATIVE: CASE EVENT DATE: 20240716
